FAERS Safety Report 9423679 (Version 2)
Quarter: 2013Q3

REPORT INFORMATION
  Report Type: Report from Study
  Country: US (occurrence: US)
  Receive Date: 20130727
  Receipt Date: 20130731
  Transmission Date: 20140515
  Serious: Yes (Hospitalization)
  Sender: FDA-Public Use
  Company Number: US-ROCHE-1252707

PATIENT
  Age: 58 Year
  Sex: Male
  Weight: 86.26 kg

DRUGS (2)
  1. AVASTIN [Suspect]
     Indication: GLIOSARCOMA
     Route: 042
     Dates: start: 20130301, end: 20130718
  2. TEMODAR [Concomitant]

REACTIONS (5)
  - Headache [Not Recovered/Not Resolved]
  - Vomiting [Not Recovered/Not Resolved]
  - Cough [Not Recovered/Not Resolved]
  - Headache [Recovered/Resolved]
  - Vomiting [Not Recovered/Not Resolved]
